FAERS Safety Report 16713135 (Version 3)
Quarter: 2019Q3

REPORT INFORMATION
  Report Type: Spontaneous
  Country: DE (occurrence: DE)
  Receive Date: 20190817
  Receipt Date: 20190903
  Transmission Date: 20191004
  Serious: Yes (Hospitalization)
  Sender: FDA-Public Use
  Company Number: DE-009507513-1908DEU005374

PATIENT
  Age: 75 Year
  Sex: Male

DRUGS (10)
  1. CANDESARTAN. [Concomitant]
     Active Substance: CANDESARTAN
     Dosage: 8 MILLIGRAM, QD (1-0-0-0)
     Route: 048
  2. DAXAS [Concomitant]
     Active Substance: ROFLUMILAST
     Dosage: 500 MILLIGRAM, QD (1-0-0-0)
     Route: 048
  3. FOSTER [Concomitant]
     Active Substance: BECLOMETHASONE\FORMOTEROL
     Dosage: 2 DOSAGE FORM, QD (1-0-1-0); STRENGTH: 100/6 (UNITS NOT PROVIDED).
     Route: 055
  4. DEKRISTOL [Concomitant]
     Active Substance: CHOLECALCIFEROL
     Dosage: 20000 INTERNATIONAL UNITS, EVERY 2 WEEKS(14 DAYS LONG)
     Route: 048
  5. ALENDRONATE SODIUM. [Suspect]
     Active Substance: ALENDRONATE SODIUM
     Indication: SPINAL DISORDER
     Dosage: 70 MILLIGRAM, QW (SATURDAYS ONE FOR OVER TWO AND A HALF YEARS)
     Dates: start: 20190720
  6. SPIRIVA RESPIMAT [Concomitant]
     Active Substance: TIOTROPIUM BROMIDE
     Dosage: 2 DOSAGE FORM, QD (2-0-0-0)
     Route: 055
  7. AMLODIPINO WINTHROP [Concomitant]
     Dosage: 10 MILLIGRAM, QD (1-0-1-0)
     Route: 048
  8. SIMVASTATIN. [Concomitant]
     Active Substance: SIMVASTATIN
     Dosage: 20 MILLIGRAM, QD (0-0-1-0)
     Route: 048
  9. NOVAMINSULFON [Concomitant]
     Active Substance: METAMIZOLE
     Dosage: 500 MILLIGRAM, QD (0.5-0-0.5-0)
     Route: 048
  10. MORPHINE SULFATE. [Concomitant]
     Active Substance: MORPHINE SULFATE
     Dosage: 20 MILLIGRAM, QD (1-0-1-0)
     Route: 048

REACTIONS (4)
  - Nausea [Recovering/Resolving]
  - Dizziness [Recovering/Resolving]
  - Hospitalisation [Unknown]
  - Product quality issue [Unknown]

NARRATIVE: CASE EVENT DATE: 20190720
